FAERS Safety Report 6913948-0 (Version None)
Quarter: 2010Q3

REPORT INFORMATION
  Report Type: 
  Country: None (occurrence: None)
  Receive Date: 20100805
  Receipt Date: 20100805
  Transmission Date: 20110219
  Serious: Yes (Death)
  Sender: FDA-Public Use
  Company Number: None

PATIENT
  Sex: Male
  Weight: 95.2554 kg

DRUGS (1)
  1. DURAGESIC-100 [Suspect]
     Indication: POSTOPERATIVE ANALGESIA
     Dosage: 1 PATCH EVERY 72 HOURS TOP
     Route: 061
     Dates: start: 20051021, end: 20051022

REACTIONS (1)
  - DEATH [None]
